APPROVED DRUG PRODUCT: ATOVAQUONE AND PROGUANIL HYDROCHLORIDE
Active Ingredient: ATOVAQUONE; PROGUANIL HYDROCHLORIDE
Strength: 250MG;100MG
Dosage Form/Route: TABLET;ORAL
Application: A091211 | Product #001 | TE Code: AB
Applicant: GLENMARK PHARMACEUTICALS LTD
Approved: Jan 12, 2011 | RLD: No | RS: No | Type: RX